FAERS Safety Report 20846681 (Version 3)
Quarter: 2022Q3

REPORT INFORMATION
  Report Type: Report from Study
  Country: US (occurrence: US)
  Receive Date: 20220519
  Receipt Date: 20220811
  Transmission Date: 20221026
  Serious: Yes (Other)
  Sender: FDA-Public Use
  Company Number: US-AUROBINDO-AUR-APL-2022-000986

PATIENT
  Sex: Male

DRUGS (12)
  1. BELINOSTAT [Suspect]
     Active Substance: BELINOSTAT
     Indication: Chondrosarcoma
     Dosage: 4220 UNK (UNSPECIFIED UNITS)
     Route: 065
     Dates: start: 20201130
  2. BELINOSTAT [Suspect]
     Active Substance: BELINOSTAT
     Dosage: 6330 UNK (UNSPECIFIED UNITS)
     Route: 065
     Dates: start: 20201130
  3. BELINOSTAT [Suspect]
     Active Substance: BELINOSTAT
     Dosage: 4220 UNK
     Route: 065
     Dates: start: 20201214
  4. BELINOSTAT [Suspect]
     Active Substance: BELINOSTAT
     Dosage: 6330 DOSAGE FORM
     Route: 065
     Dates: start: 20201214
  5. BELINOSTAT [Suspect]
     Active Substance: BELINOSTAT
     Dosage: 10550 UNK (UNSPECIFIED UNITS)
     Route: 065
     Dates: start: 20201228
  6. BELINOSTAT [Suspect]
     Active Substance: BELINOSTAT
     Dosage: 10550 UNK
     Route: 065
     Dates: start: 20210111
  7. BELINOSTAT [Suspect]
     Active Substance: BELINOSTAT
     Dosage: 4220 DOSAGE FORM
     Route: 065
     Dates: start: 20210111
  8. DECITABINE [Suspect]
     Active Substance: DECITABINE
     Indication: Product used for unknown indication
     Dosage: UNK
     Route: 065
  9. GUADECITABINE [Suspect]
     Active Substance: GUADECITABINE
     Indication: Product used for unknown indication
     Dosage: 450 UNK (UNSPECIFIED UNITS)
     Route: 065
     Dates: start: 20201130
  10. GUADECITABINE [Suspect]
     Active Substance: GUADECITABINE
     Dosage: 450 UNK (UNSPECIFIED UNITS)
     Route: 065
     Dates: start: 20201228
  11. GUADECITABINE [Suspect]
     Active Substance: GUADECITABINE
     Dosage: 450 DOSAGE FORM
     Route: 065
     Dates: start: 20201214
  12. GUADECITABINE [Suspect]
     Active Substance: GUADECITABINE
     Dosage: 450 UNK
     Route: 065
     Dates: start: 20210111

REACTIONS (21)
  - Diverticulitis [Unknown]
  - Sinus tachycardia [Unknown]
  - Nausea [Unknown]
  - Sneezing [Unknown]
  - Vomiting [Unknown]
  - Constipation [Unknown]
  - Hypocalcaemia [Unknown]
  - Pain in extremity [Unknown]
  - Infusion related reaction [Unknown]
  - Blood alkaline phosphatase increased [Unknown]
  - Anaemia [Unknown]
  - Gastrointestinal disorder [Unknown]
  - Blood creatinine increased [Unknown]
  - Lymphocyte count decreased [Unknown]
  - Dyspnoea [Unknown]
  - Fatigue [Unknown]
  - Nocturia [Unknown]
  - Neck pain [Unknown]
  - Neutrophil count increased [Unknown]
  - Protein total decreased [Unknown]
  - Platelet count increased [Unknown]

NARRATIVE: CASE EVENT DATE: 20201214
